FAERS Safety Report 4470036-3 (Version None)
Quarter: 2004Q4

REPORT INFORMATION
  Report Type: 
  Country: None (occurrence: None)
  Receive Date: 20041008
  Receipt Date: 20040805
  Transmission Date: 20050328
  Serious: Yes (Other)
  Sender: FDA-Public Use
  Company Number: PHBS2004JP10394

PATIENT
  Age: 27 Year
  Sex: Female

DRUGS (1)
  1. SANOREX [Suspect]
     Indication: OBESITY
     Route: 048
     Dates: start: 20040720, end: 20040727

REACTIONS (2)
  - ABORTION INDUCED [None]
  - DRUG EXPOSURE DURING PREGNANCY [None]
